FAERS Safety Report 7597452-5 (Version None)
Quarter: 2011Q3

REPORT INFORMATION
  Report Type: 
  Country: None (occurrence: None)
  Receive Date: 20110708
  Receipt Date: 20110704
  Transmission Date: 20111222
  Serious: Yes (Life-Threatening, Hospitalization, Disabling, Other)
  Sender: FDA-Public Use
  Company Number: JP-SANOFI-AVENTIS-2010SA072981

PATIENT
  Age: 47 Year
  Sex: Male
  Weight: 83 kg

DRUGS (44)
  1. OXALIPLATIN [Suspect]
     Route: 041
     Dates: start: 20100413, end: 20100413
  2. LEUCOVORIN CALCIUM [Concomitant]
     Route: 041
     Dates: start: 20090728, end: 20090908
  3. FLUOROURACIL [Concomitant]
     Route: 040
     Dates: start: 20090728, end: 20090908
  4. FLUOROURACIL [Concomitant]
     Route: 041
     Dates: start: 20090728, end: 20090908
  5. DEXAMETHASONE SODIUM PHOSPHATE [Concomitant]
     Indication: PREMEDICATION
     Dosage: 8-6.6 MG
     Route: 041
     Dates: start: 20090629, end: 20101028
  6. POLARAMINE [Concomitant]
     Indication: PREMEDICATION
     Route: 041
     Dates: start: 20090714, end: 20101028
  7. GRANISETRON [Concomitant]
     Indication: PREMEDICATION
     Route: 041
     Dates: start: 20100119, end: 20101028
  8. CELESTAMINE TAB [Concomitant]
     Route: 048
     Dates: start: 20090715, end: 20100325
  9. CELESTAMINE TAB [Concomitant]
  10. OXALIPLATIN [Suspect]
     Route: 041
     Dates: start: 20090728, end: 20090728
  11. OXALIPLATIN [Suspect]
     Route: 041
     Dates: start: 20101028, end: 20101028
  12. XELODA [Suspect]
     Indication: RECTAL CANCER
     Route: 048
     Dates: start: 20100119, end: 20100201
  13. AVASTIN [Suspect]
     Dosage: 5 MG/KG/DAY
     Route: 041
     Dates: start: 20100413, end: 20100413
  14. DEXAMETHASONE SODIUM PHOSPHATE [Concomitant]
     Route: 041
     Dates: start: 20100119, end: 20101028
  15. MOBIC [Concomitant]
     Route: 048
     Dates: start: 20100511
  16. LOXONIN [Concomitant]
  17. ZOMETA [Suspect]
     Indication: RECTAL CANCER
     Route: 041
     Dates: start: 20100914, end: 20101028
  18. KYTRIL [Concomitant]
     Indication: PREMEDICATION
     Route: 041
     Dates: start: 20090629, end: 20090908
  19. CELESTAMINE TAB [Concomitant]
     Route: 048
     Dates: start: 20090715, end: 20100325
  20. PROTECADIN [Concomitant]
  21. XELODA [Suspect]
     Route: 048
     Dates: start: 20100413, end: 20101010
  22. AVASTIN [Suspect]
     Dosage: 5 MG/KG/DAY
     Route: 041
     Dates: start: 20101028, end: 20101028
  23. LEUCOVORIN CALCIUM [Concomitant]
     Indication: RECTAL CANCER
     Route: 041
     Dates: start: 20090630, end: 20090714
  24. FLUOROURACIL [Concomitant]
     Route: 041
     Dates: start: 20090629, end: 20090714
  25. CELESTAMINE TAB [Concomitant]
     Indication: PYREXIA
     Route: 048
     Dates: start: 20090715, end: 20100325
  26. INDISETRON [Concomitant]
     Indication: NAUSEA
     Route: 048
     Dates: start: 20090825
  27. TAMSULOSIN HYDROCHLORIDE [Concomitant]
     Indication: DYSURIA
     Route: 048
     Dates: start: 20090908, end: 20090921
  28. BIFIDOBACTERIUM BIFIDUM/ENTEROCOCCUS FAECIUM [Concomitant]
     Route: 048
     Dates: start: 20100302
  29. WARFARIN SODIUM [Concomitant]
     Indication: SUBCLAVIAN VEIN THROMBOSIS
     Route: 048
     Dates: start: 20100413, end: 20100920
  30. OXALIPLATIN [Suspect]
     Indication: RECTAL CANCER
     Route: 041
     Dates: start: 20090630, end: 20090630
  31. OXALIPLATIN [Suspect]
     Route: 041
     Dates: start: 20100119, end: 20100119
  32. OXALIPLATIN [Suspect]
     Route: 041
     Dates: start: 20100209, end: 20100209
  33. OXALIPLATIN [Suspect]
     Route: 041
     Dates: start: 20101005, end: 20101005
  34. XELODA [Suspect]
     Route: 048
     Dates: start: 20100209, end: 20100405
  35. AVASTIN [Suspect]
     Indication: RECTAL CANCER
     Dosage: 5 MG/KG/DAY
     Route: 041
     Dates: start: 20090714, end: 20090714
  36. CELESTAMINE TAB [Concomitant]
     Indication: RASH
     Route: 048
     Dates: start: 20090715, end: 20100325
  37. PLETAL [Concomitant]
     Indication: SUBCLAVIAN VEIN THROMBOSIS
     Route: 048
     Dates: start: 20090825, end: 20100412
  38. LOPERAMIDE [Concomitant]
  39. FLUOROURACIL [Concomitant]
     Indication: RECTAL CANCER
     Route: 040
     Dates: start: 20090629, end: 20090714
  40. LOXONIN [Concomitant]
     Indication: PYREXIA
     Dosage: UNK-60 MG
     Route: 048
     Dates: start: 20090908, end: 20100325
  41. CELESTAMINE TAB [Concomitant]
  42. NERISONA [Concomitant]
     Indication: RASH
     Route: 061
     Dates: start: 20090715
  43. PROTECADIN [Concomitant]
     Indication: ABDOMINAL PAIN UPPER
     Route: 048
     Dates: start: 20100119, end: 20101027
  44. PYRINAZIN [Concomitant]
     Indication: PYREXIA
     Route: 048
     Dates: start: 20100601, end: 20100601

REACTIONS (10)
  - BLOOD CREATININE INCREASED [None]
  - RENAL FAILURE ACUTE [None]
  - THROMBOTIC MICROANGIOPATHY [None]
  - DISSEMINATED INTRAVASCULAR COAGULATION [None]
  - HAEMATURIA [None]
  - HAEMOLYTIC ANAEMIA [None]
  - THROMBOSIS [None]
  - PLATELET COUNT DECREASED [None]
  - PYREXIA [None]
  - URTICARIA [None]
